FAERS Safety Report 8555425-X (Version None)
Quarter: 2012Q3

REPORT INFORMATION
  Report Type: 
  Country: None (occurrence: None)
  Receive Date: 20120731
  Receipt Date: 20110825
  Transmission Date: 20120928
  Serious: Yes (Other)
  Sender: FDA-Public Use
  Company Number: US-ASTRAZENECA-2011SE12496

PATIENT
  Sex: Male

DRUGS (3)
  1. FLUOXETINE HYDROCHLORIDE [Concomitant]
     Dates: start: 20090101
  2. ABILIFY [Concomitant]
     Dates: start: 20090101
  3. SEROQUEL [Suspect]
     Route: 048
     Dates: start: 20090425

REACTIONS (3)
  - PANCREATITIS [None]
  - TYPE 2 DIABETES MELLITUS [None]
  - DIABETIC COMA [None]
